FAERS Safety Report 8887334 (Version 3)
Quarter: 2012Q4

REPORT INFORMATION
  Report Type: 
  Country: US (occurrence: US)
  Receive Date: 20121101
  Receipt Date: 20121226
  Transmission Date: 20130627
  Serious: Yes (Hospitalization, Other)
  Sender: FDA-Public Use
  Company Number: US-PFIZER INC-2012272122

PATIENT
  Age: 40 Year
  Sex: Female
  Weight: 132 kg

DRUGS (2)
  1. NEURONTIN [Suspect]
     Indication: NEUROPATHIC PAIN
     Dosage: 1600 mg(2 capsules of 200mg in morning+3capsules of 200mg in afternoon+3capsules of 200mg in evening
     Route: 048
     Dates: start: 201007, end: 2012
  2. ALPRAZOLAM [Concomitant]
     Indication: ANXIETY
     Dosage: UNK

REACTIONS (4)
  - Hodgkin^s disease [Unknown]
  - Neoplasm malignant [Unknown]
  - Neuralgia [Unknown]
  - Drug ineffective [Unknown]
